FAERS Safety Report 5126696-7 (Version None)
Quarter: 2006Q4

REPORT INFORMATION
  Report Type: 
  Country: None (occurrence: None)
  Receive Date: 20061012
  Receipt Date: 20061012
  Transmission Date: 20070319
  Serious: Yes (Hospitalization)
  Sender: FDA-Public Use
  Company Number: None

PATIENT
  Age: 78 Year
  Sex: Male
  Weight: 95.1 kg

DRUGS (1)
  1. ATENOLOL [Suspect]
     Indication: HYPERTENSION
     Dosage: 50 MG, 50 MG QD ORAL
     Route: 048
     Dates: start: 20050720, end: 20060728

REACTIONS (1)
  - ATRIOVENTRICULAR BLOCK [None]
